FAERS Safety Report 23734197 (Version 1)
Quarter: 2024Q2

REPORT INFORMATION
  Report Type: Spontaneous
  Country: FR (occurrence: FR)
  Receive Date: 20240412
  Receipt Date: 20240412
  Transmission Date: 20240715
  Serious: Yes (Life-Threatening)
  Sender: FDA-Public Use
  Company Number: None

PATIENT
  Age: 69 Year
  Sex: Female

DRUGS (2)
  1. ZOPICLONE [Interacting]
     Active Substance: ZOPICLONE
     Indication: Alcohol withdrawal syndrome
     Route: 048
     Dates: start: 20240201, end: 20240202
  2. DIAZEPAM [Interacting]
     Active Substance: DIAZEPAM
     Indication: Alcohol withdrawal syndrome
     Route: 042
     Dates: start: 20240130, end: 20240201

REACTIONS (2)
  - Respiratory distress [Recovered/Resolved]
  - Drug interaction [Recovered/Resolved]

NARRATIVE: CASE EVENT DATE: 20240202
